FAERS Safety Report 5713853-1 (Version None)
Quarter: 2008Q2

REPORT INFORMATION
  Report Type: 
  Country: None (occurrence: None)
  Receive Date: 20080421
  Receipt Date: 20080408
  Transmission Date: 20081010
  Serious: Yes (Hospitalization)
  Sender: FDA-Public Use
  Company Number: WAES 0804FRA00022

PATIENT
  Age: 54 Year
  Sex: Female

DRUGS (4)
  1. CAP VORINOSTAT [Suspect]
     Indication: NON-SMALL CELL LUNG CANCER
     Dosage: 400 MG DAILY PO
     Route: 048
     Dates: start: 20080317, end: 20080330
  2. GEMCITABINE [Suspect]
     Indication: NON-SMALL CELL LUNG CANCER
     Dosage: 1250 MG/M2 DAILY IV
     Route: 042
     Dates: start: 20080319, end: 20080319
  3. GEMCITABINE [Suspect]
     Indication: NON-SMALL CELL LUNG CANCER
     Dosage: 1250 MG/M2 DAILY IV
     Route: 042
     Dates: start: 20080326, end: 20080326
  4. CISPLATIN [Suspect]
     Indication: NON-SMALL CELL LUNG CANCER
     Dosage: 75 MG/M2 DAILY IV
     Route: 042
     Dates: start: 20080319, end: 20080319

REACTIONS (2)
  - FEBRILE NEUTROPENIA [None]
  - PLATELET COUNT DECREASED [None]
